FAERS Safety Report 8573097-5 (Version None)
Quarter: 2012Q3

REPORT INFORMATION
  Report Type: 
  Country: None (occurrence: None)
  Receive Date: 20120806
  Receipt Date: 20120726
  Transmission Date: 20120928
  Serious: Yes (Hospitalization)
  Sender: FDA-Public Use
  Company Number: US-ACTELION-A-NJ2012-60127

PATIENT
  Age: 58 Year
  Sex: Female

DRUGS (2)
  1. TRACLEER [Suspect]
     Indication: PORTAL HYPERTENSION
     Dosage: UNK
     Route: 048
  2. REVATIO [Concomitant]

REACTIONS (3)
  - FALL [None]
  - SYNCOPE [None]
  - AMMONIA INCREASED [None]
